FAERS Safety Report 5445165-8 (Version None)
Quarter: 2007Q3

REPORT INFORMATION
  Report Type: 
  Country: None (occurrence: None)
  Receive Date: 20070906
  Receipt Date: 20070827
  Transmission Date: 20080115
  Serious: Yes (Other)
  Sender: FDA-Public Use
  Company Number: JP-PFIZER INC-2007071682

PATIENT
  Age: 61 Year
  Sex: Female

DRUGS (2)
  1. NORVASC [Suspect]
     Route: 048
  2. LANSOPRAZOLE [Concomitant]

REACTIONS (2)
  - COLD SWEAT [None]
  - LOSS OF CONSCIOUSNESS [None]
